FAERS Safety Report 9204248 (Version 1)
Quarter: 2013Q2

REPORT INFORMATION
  Report Type: Spontaneous
  Country: NL (occurrence: NL)
  Receive Date: 20130402
  Receipt Date: 20130402
  Transmission Date: 20140414
  Serious: Yes (Hospitalization)
  Sender: FDA-Public Use
  Company Number: NL-ELI_LILLY_AND_COMPANY-NL201303007592

PATIENT
  Age: 72 Year
  Sex: Female

DRUGS (7)
  1. FORSTEO [Suspect]
     Indication: OSTEOPOROSIS
     Dosage: 20 UG, QD
     Route: 058
     Dates: start: 20121003, end: 201301
  2. ATORVASTATIN [Concomitant]
     Dosage: 10 MG, UNK
  3. AZATHIOPRINE [Concomitant]
     Dosage: 50 MG, UNK
  4. CEFTIBUTEN [Concomitant]
     Dosage: 400 MG, UNK
  5. ENALAPRIL [Concomitant]
     Dosage: 5 MG, UNK
  6. ESOMEPRAZOLE [Concomitant]
     Dosage: 20 MG, UNK
  7. PREDNISON [Concomitant]
     Dosage: 5 MG, UNK

REACTIONS (5)
  - Thrombosis [Not Recovered/Not Resolved]
  - Hepatitis [Not Recovered/Not Resolved]
  - Fatigue [Not Recovered/Not Resolved]
  - Influenza like illness [Not Recovered/Not Resolved]
  - Malaise [Not Recovered/Not Resolved]
